FAERS Safety Report 9044208 (Version 1)
Quarter: 2013Q1

REPORT INFORMATION
  Report Type: Report from Study
  Country: US (occurrence: US)
  Receive Date: 20130130
  Receipt Date: 20130130
  Transmission Date: 20140127
  Serious: No
  Sender: FDA-Public Use
  Company Number: US-ABBOTT-12P-163-0956300-00

PATIENT
  Age: 62 Year
  Sex: Female

DRUGS (3)
  1. HUMIRA 40 MG/ 0.8 ML PRE-FILLED SYRINGE [Suspect]
     Indication: RHEUMATOID ARTHRITIS
     Route: 058
     Dates: start: 20120621
  2. LISINOPRIL/HCTZ [Concomitant]
     Indication: BLOOD PRESSURE
  3. OMEPRAZOLE [Concomitant]
     Indication: GASTROOESOPHAGEAL REFLUX DISEASE

REACTIONS (7)
  - Swelling face [Not Recovered/Not Resolved]
  - Local swelling [Recovered/Resolved]
  - Oedema peripheral [Recovered/Resolved]
  - Local swelling [Recovered/Resolved]
  - Local swelling [Not Recovered/Not Resolved]
  - Oedema peripheral [Recovered/Resolved]
  - Local swelling [Recovered/Resolved]
